FAERS Safety Report 23923033 (Version 1)
Quarter: 2024Q2

REPORT INFORMATION
  Report Type: Spontaneous
  Country: MY (occurrence: MY)
  Receive Date: 20240531
  Receipt Date: 20240531
  Transmission Date: 20240716
  Serious: Yes (Life-Threatening, Other)
  Sender: FDA-Public Use
  Company Number: MY-009507513-2405MYS009626

PATIENT
  Age: 10 Year
  Weight: 27 kg

DRUGS (3)
  1. BRIDION [Suspect]
     Active Substance: SUGAMMADEX
     Indication: Neuromuscular blockade reversal
     Dosage: 54 MG (2MG/KG)
     Route: 042
     Dates: start: 20240524, end: 20240524
  2. BRIDION [Suspect]
     Active Substance: SUGAMMADEX
     Dosage: 27 MG (1MG/KG)
     Route: 042
     Dates: start: 20240524, end: 20240524
  3. ACETAMINOPHEN [Concomitant]
     Active Substance: ACETAMINOPHEN
     Route: 042

REACTIONS (1)
  - Anaphylactic shock [Recovered/Resolved]

NARRATIVE: CASE EVENT DATE: 20240524
